FAERS Safety Report 5408823-7 (Version None)
Quarter: 2007Q3

REPORT INFORMATION
  Report Type: 
  Country: None (occurrence: None)
  Receive Date: 20070713
  Receipt Date: 20070227
  Transmission Date: 20080115
  Serious: Yes (Hospitalization, Disabling)
  Sender: FDA-Public Use
  Company Number: US-JNJFOC-20060701090

PATIENT
  Age: 23 Year
  Sex: Female
  Weight: 111.3 kg

DRUGS (2)
  1. ORTHO EVRA [Suspect]
     Indication: CONTRACEPTION
     Dates: start: 20030301, end: 20031103
  2. PRILOSEC [Concomitant]

REACTIONS (1)
  - ISCHAEMIC STROKE [None]
